FAERS Safety Report 9315980 (Version 1)
Quarter: 2013Q2

REPORT INFORMATION
  Report Type: Spontaneous
  Country: US (occurrence: US)
  Receive Date: 20130530
  Receipt Date: 20130530
  Transmission Date: 20140414
  Serious: No
  Sender: FDA-Public Use
  Company Number: US-BIOGENIDEC-2010BI004159

PATIENT
  Age: 44 Year
  Sex: Female

DRUGS (1)
  1. TYSABRI [Suspect]
     Indication: MULTIPLE SCLEROSIS
     Route: 042
     Dates: start: 20090923, end: 20110728

REACTIONS (11)
  - Irritable bowel syndrome [Recovered/Resolved]
  - Somnolence [Recovered/Resolved]
  - Vulvovaginal mycotic infection [Not Recovered/Not Resolved]
  - Cough [Recovered/Resolved]
  - Clostridium difficile infection [Recovered/Resolved]
  - Chest discomfort [Recovered/Resolved]
  - Sinus headache [Recovered/Resolved]
  - Tooth infection [Recovered/Resolved]
  - Headache [Recovered/Resolved]
  - Vaginitis bacterial [Recovered/Resolved]
  - Oropharyngeal pain [Recovered/Resolved]
